FAERS Safety Report 17499478 (Version 1)
Quarter: 2020Q1

REPORT INFORMATION
  Report Type: Spontaneous
  Country: CA (occurrence: CA)
  Receive Date: 20200305
  Receipt Date: 20200305
  Transmission Date: 20200409
  Serious: Yes (Other)
  Sender: FDA-Public Use
  Company Number: CA-ADVANZ PHARMA-GSH201801-000125

PATIENT

DRUGS (36)
  1. SODIUM AUROTHIOMALATE [Concomitant]
     Active Substance: GOLD SODIUM THIOMALATE
  2. DESOXIMETASONE. [Concomitant]
     Active Substance: DESOXIMETASONE
  3. ACTEMRA [Concomitant]
     Active Substance: TOCILIZUMAB
  4. ENBREL [Suspect]
     Active Substance: ETANERCEPT
     Indication: RHEUMATOID ARTHRITIS
     Dosage: 25 MG, WEEKLY, (QOW)
     Route: 058
     Dates: start: 200205, end: 200409
  5. REMICADE [Suspect]
     Active Substance: INFLIXIMAB
     Indication: RHEUMATOID ARTHRITIS
     Dosage: 300 MG, MONTHLY, POWDER AND SOLUTION FOR SOLUTION FOR INJECTION
     Route: 042
     Dates: start: 200407, end: 2005
  6. GOLD [Suspect]
     Active Substance: GOLD
     Indication: RHEUMATOID ARTHRITIS
     Dosage: UNK
     Route: 065
  7. VAGIFEM [Concomitant]
     Active Substance: ESTRADIOL
  8. MYOCRISIN [Suspect]
     Active Substance: GOLD SODIUM THIOMALATE
     Indication: PRODUCT USED FOR UNKNOWN INDICATION
     Dosage: UNK
     Route: 065
  9. ARAVA [Concomitant]
     Active Substance: LEFLUNOMIDE
     Indication: RHEUMATOID ARTHRITIS
     Dosage: 20 MG, QD
     Dates: start: 200408
  10. SYNTHROID [Concomitant]
     Active Substance: LEVOTHYROXINE SODIUM
  11. RITUXAN [Concomitant]
     Active Substance: RITUXIMAB
     Indication: RHEUMATOID ARTHRITIS
  12. HYDROXYCHLOROQUINE [Suspect]
     Active Substance: HYDROXYCHLOROQUINE
     Indication: RHEUMATOID ARTHRITIS
     Route: 065
  13. XELJANZ [Suspect]
     Active Substance: TOFACITINIB CITRATE
     Indication: PRODUCT USED FOR UNKNOWN INDICATION
     Dosage: UNK
     Route: 065
  14. ARAVA [Concomitant]
     Active Substance: LEFLUNOMIDE
     Dosage: UNK
  15. DILAUDID [Concomitant]
     Active Substance: HYDROMORPHONE HYDROCHLORIDE
     Indication: PAIN
  16. CORTISONE [Concomitant]
     Active Substance: CORTISONE
  17. PLANTAGO OVATA [Concomitant]
     Active Substance: HERBALS\PLANTAGO OVATA LEAF
  18. METHOTREXATE. [Suspect]
     Active Substance: METHOTREXATE
     Dosage: UNK
     Route: 065
  19. ATIVAN [Concomitant]
     Active Substance: LORAZEPAM
  20. OMNARIS [Concomitant]
     Active Substance: CICLESONIDE
  21. KINERET [Concomitant]
     Active Substance: ANAKINRA
  22. XELJANZ [Concomitant]
     Active Substance: TOFACITINIB CITRATE
  23. HUMIRA [Suspect]
     Active Substance: ADALIMUMAB
     Indication: RHEUMATOID ARTHRITIS
     Dosage: 40 MG, QOW
     Route: 058
     Dates: start: 2005
  24. METHOTREXATE. [Suspect]
     Active Substance: METHOTREXATE
     Indication: RHEUMATOID ARTHRITIS
     Dosage: 25 MG, WEEKLY (Q4W)
     Route: 065
     Dates: start: 1995
  25. ORENCIA [Suspect]
     Active Substance: ABATACEPT
     Indication: PRODUCT USED FOR UNKNOWN INDICATION
     Dosage: UNK
     Route: 065
  26. LASIX [Concomitant]
     Active Substance: FUROSEMIDE
  27. LOPERAMIDE [Concomitant]
     Active Substance: LOPERAMIDE
  28. DIPHENHYDRAMINE. [Concomitant]
     Active Substance: DIPHENHYDRAMINE
  29. HYDROXYCHLOROQUINE [Suspect]
     Active Substance: HYDROXYCHLOROQUINE
     Indication: RHEUMATOID ARTHRITIS
     Route: 065
  30. HYDROXYCHLOROQUINE [Suspect]
     Active Substance: HYDROXYCHLOROQUINE
     Indication: RHEUMATOID ARTHRITIS
     Dosage: 200 MG, BID
     Route: 065
  31. ACTEMRA [Suspect]
     Active Substance: TOCILIZUMAB
     Indication: RHEUMATOID ARTHRITIS
     Dosage: UNK
     Route: 065
     Dates: end: 20150203
  32. ENABLEX [Concomitant]
     Active Substance: DARIFENACIN HYDROBROMIDE
  33. NORFLEX [Concomitant]
     Active Substance: ORPHENADRINE CITRATE
  34. PANTOLOC [Concomitant]
     Active Substance: PANTOPRAZOLE SODIUM
  35. ABATACEPT [Concomitant]
     Active Substance: ABATACEPT
     Indication: RHEUMATOID ARTHRITIS
  36. BENADRYL ALLERGY [Concomitant]
     Active Substance: DIPHENHYDRAMINE HYDROCHLORIDE

REACTIONS (19)
  - Herpes zoster [Unknown]
  - Blood cholesterol increased [Unknown]
  - Drug ineffective [Unknown]
  - Synovitis [Unknown]
  - Soft tissue disorder [Unknown]
  - Leukopenia [Unknown]
  - Liver function test abnormal [Unknown]
  - Pneumonia viral [Unknown]
  - Peripheral swelling [Unknown]
  - Fibromyalgia [Unknown]
  - Arthritis [Unknown]
  - Drug hypersensitivity [Unknown]
  - Joint swelling [Unknown]
  - Infection [Unknown]
  - Anaemia [Unknown]
  - Oral pain [Not Recovered/Not Resolved]
  - Arthralgia [Unknown]
  - Therapeutic product effect incomplete [Unknown]
  - Product use issue [Unknown]

NARRATIVE: CASE EVENT DATE: 2015
